FAERS Safety Report 25080906 (Version 2)
Quarter: 2025Q2

REPORT INFORMATION
  Report Type: Spontaneous
  Country: FR (occurrence: FR)
  Receive Date: 20250315
  Receipt Date: 20250404
  Transmission Date: 20250716
  Serious: Yes (Hospitalization, Other)
  Sender: AUROBINDO
  Company Number: FR-AFSSAPS-NC2025000290

PATIENT
  Age: 77 Year
  Sex: Female
  Weight: 73 kg

DRUGS (36)
  1. OLANZAPINE [Suspect]
     Active Substance: OLANZAPINE
     Indication: Product used for unknown indication
     Dosage: 2.5 MILLIGRAM, ONCE A DAY
     Route: 065
  2. ZOPICLONE [Interacting]
     Active Substance: ZOPICLONE
     Indication: Sleep disorder
     Dosage: 3.75 MILLIGRAM, ONCE A DAY
     Route: 048
     Dates: start: 20241028, end: 20250110
  3. ZOPICLONE [Interacting]
     Active Substance: ZOPICLONE
     Route: 048
     Dates: start: 20250111
  4. PREDNISONE [Interacting]
     Active Substance: PREDNISONE
     Indication: Pain
     Route: 048
     Dates: start: 20241231
  5. PREDNISONE [Interacting]
     Active Substance: PREDNISONE
     Dosage: 120 MILLIGRAM, ONCE A DAY
     Route: 048
  6. PREDNISONE [Interacting]
     Active Substance: PREDNISONE
     Dosage: 80 MILLIGRAM, ONCE A DAY
     Route: 048
  7. PREDNISONE [Interacting]
     Active Substance: PREDNISONE
     Dosage: 60 MILLIGRAM, ONCE A DAY
     Route: 048
  8. PREDNISONE [Interacting]
     Active Substance: PREDNISONE
     Dosage: 40 MILLIGRAM, ONCE A DAY
     Route: 048
  9. RIVOTRIL [Interacting]
     Active Substance: CLONAZEPAM
     Indication: Pain
     Dosage: 2 GTT DROPS, ONCE A DAY
     Route: 048
     Dates: start: 20241226, end: 20250106
  10. RIVOTRIL [Interacting]
     Active Substance: CLONAZEPAM
     Dosage: 2 GTT DROPS, ONCE A DAY
     Route: 048
     Dates: start: 20250109, end: 20250110
  11. OXAZEPAM [Interacting]
     Active Substance: OXAZEPAM
     Indication: Anxiety
     Dosage: 30 MILLIGRAM, ONCE A DAY (10 MILLIGRAM 3 TIMES A DAY)
     Route: 048
     Dates: start: 20241026, end: 20250116
  12. OXAZEPAM [Interacting]
     Active Substance: OXAZEPAM
     Route: 048
     Dates: start: 20250117
  13. METHADONE HYDROCHLORIDE [Interacting]
     Active Substance: METHADONE HYDROCHLORIDE
     Indication: Pain
     Dosage: 8 MILLIGRAM, 3 TIMES A DAY (3 TIMES A DAY WITH 8 MG INTERDOSES)
     Route: 048
     Dates: start: 20241207, end: 20250116
  14. METHADONE HYDROCHLORIDE [Interacting]
     Active Substance: METHADONE HYDROCHLORIDE
     Route: 048
     Dates: start: 20250108, end: 20250116
  15. BRINTELLIX [Interacting]
     Active Substance: VORTIOXETINE HYDROBROMIDE
     Indication: Affective disorder
     Dosage: 5 MILLIGRAM, ONCE A DAY
     Route: 048
     Dates: start: 20241029, end: 20241221
  16. BRINTELLIX [Interacting]
     Active Substance: VORTIOXETINE HYDROBROMIDE
     Dosage: 10 MILLIGRAM, ONCE A DAY
     Route: 048
     Dates: start: 20241222
  17. METHYLPREDNISOLONE [Suspect]
     Active Substance: METHYLPREDNISOLONE
     Indication: Pain
     Dosage: 160 MILLIGRAM, ONCE A DAY
     Route: 065
     Dates: start: 20241212
  18. TIAPRIDE HYDROCHLORIDE [Suspect]
     Active Substance: TIAPRIDE HYDROCHLORIDE
     Indication: Agitation
     Route: 042
     Dates: end: 20250113
  19. SKENAN [Concomitant]
     Active Substance: MORPHINE SULFATE
     Indication: Product used for unknown indication
     Dosage: 70 MILLIGRAM, TWO TIMES A DAY
     Route: 065
  20. MORPHINE SULFATE [Concomitant]
     Active Substance: MORPHINE SULFATE
     Indication: Product used for unknown indication
     Route: 065
  21. POLYETHYLENE GLYCOLS [Concomitant]
     Active Substance: POLYETHYLENE GLYCOLS
     Indication: Product used for unknown indication
     Route: 065
  22. ELIQUIS [Concomitant]
     Active Substance: APIXABAN
     Indication: Product used for unknown indication
     Route: 065
  23. IRBESARTAN [Concomitant]
     Active Substance: IRBESARTAN
     Indication: Product used for unknown indication
     Route: 065
  24. NALOXEGOL OXALATE [Concomitant]
     Active Substance: NALOXEGOL OXALATE
     Indication: Product used for unknown indication
     Route: 065
  25. TRIMEBUTINE [Concomitant]
     Active Substance: TRIMEBUTINE
     Indication: Product used for unknown indication
     Route: 065
  26. LANSOPRAZOLE [Concomitant]
     Active Substance: LANSOPRAZOLE
     Indication: Product used for unknown indication
     Route: 065
  27. AMLODIPINE [Concomitant]
     Active Substance: AMLODIPINE BESYLATE
     Indication: Product used for unknown indication
     Route: 065
  28. HYDROCHLOROTHIAZIDE [Concomitant]
     Active Substance: HYDROCHLOROTHIAZIDE
     Indication: Product used for unknown indication
     Route: 065
  29. LEVOTHYROXINE [Concomitant]
     Active Substance: LEVOTHYROXINE
     Indication: Product used for unknown indication
     Route: 065
  30. BEVACIZUMAB [Concomitant]
     Active Substance: BEVACIZUMAB
     Indication: Product used for unknown indication
     Route: 065
     Dates: end: 20241203
  31. LEUCOVORIN [Concomitant]
     Active Substance: LEUCOVORIN\LEUCOVORIN CALCIUM
     Indication: Product used for unknown indication
     Route: 065
  32. LEUCOVORIN [Concomitant]
     Active Substance: LEUCOVORIN\LEUCOVORIN CALCIUM
     Route: 065
     Dates: start: 20241226
  33. FLUOROURACIL [Concomitant]
     Active Substance: FLUOROURACIL
     Indication: Product used for unknown indication
     Route: 065
  34. FLUOROURACIL [Concomitant]
     Active Substance: FLUOROURACIL
     Route: 065
     Dates: start: 20241226
  35. IRINOTECAN [Concomitant]
     Active Substance: IRINOTECAN
     Indication: Product used for unknown indication
     Route: 065
  36. OXALIPLATIN [Concomitant]
     Active Substance: OXALIPLATIN
     Indication: Product used for unknown indication
     Route: 065
     Dates: start: 20241226

REACTIONS (16)
  - Hallucination [Not Recovered/Not Resolved]
  - Choking [Unknown]
  - Pulmonary congestion [Unknown]
  - Encephalopathy [Unknown]
  - Clostridium difficile colitis [Unknown]
  - Confusional state [Not Recovered/Not Resolved]
  - Somnolence [Not Recovered/Not Resolved]
  - Aggression [Unknown]
  - Hypokalaemia [Unknown]
  - Hypophosphataemia [Unknown]
  - Persecutory delusion [Unknown]
  - Haemorrhage [Unknown]
  - Head injury [Unknown]
  - Fall [Unknown]
  - Agitation [Not Recovered/Not Resolved]
  - Off label use [Unknown]

NARRATIVE: CASE EVENT DATE: 20241226
